FAERS Safety Report 13589166 (Version 1)
Quarter: 2017Q2

REPORT INFORMATION
  Report Type: Spontaneous
  Country: US (occurrence: US)
  Receive Date: 20170526
  Receipt Date: 20170526
  Transmission Date: 20170830
  Serious: No
  Sender: FDA-Public Use
  Company Number: None

PATIENT
  Age: 42 Year
  Sex: Female
  Weight: 49.5 kg

DRUGS (12)
  1. SUBOXONE [Concomitant]
     Active Substance: BUPRENORPHINE HYDROCHLORIDE\NALOXONE HYDROCHLORIDE
  2. VYVANSE [Concomitant]
     Active Substance: LISDEXAMFETAMINE DIMESYLATE
  3. ADVIL [Concomitant]
     Active Substance: IBUPROFEN
  4. LEVAQUIN [Suspect]
     Active Substance: LEVOFLOXACIN
     Indication: INFECTION PROPHYLAXIS
     Route: 048
  5. HUMIRA [Concomitant]
     Active Substance: ADALIMUMAB
  6. PREDNISONE. [Concomitant]
     Active Substance: PREDNISONE
  7. VITAMIN B12 [Concomitant]
     Active Substance: CYANOCOBALAMIN
  8. VITAMIN D [Concomitant]
     Active Substance: CHOLECALCIFEROL
  9. PROBIOTICS [Concomitant]
     Active Substance: PROBIOTICS NOS
  10. TURMERIC [Concomitant]
     Active Substance: HERBALS\TURMERIC
  11. PROVIGIL [Concomitant]
     Active Substance: MODAFINIL
  12. ALDONDERATE [Concomitant]

REACTIONS (7)
  - Abnormal sleep-related event [None]
  - Toxicity to various agents [None]
  - Neuropathy peripheral [None]
  - General physical health deterioration [None]
  - Frustration tolerance decreased [None]
  - Screaming [None]
  - Pain [None]
